FAERS Safety Report 6349423-4 (Version None)
Quarter: 2009Q3

REPORT INFORMATION
  Report Type: 
  Country: None (occurrence: None)
  Receive Date: 20090911
  Receipt Date: 20090901
  Transmission Date: 20100115
  Serious: Yes (Other)
  Sender: FDA-Public Use
  Company Number: DE-PFIZER INC-2009262409

PATIENT

DRUGS (1)
  1. REVATIO [Suspect]
     Route: 048

REACTIONS (1)
  - PANCYTOPENIA [None]
